FAERS Safety Report 9165190 (Version 4)
Quarter: 2013Q2

REPORT INFORMATION
  Report Type: Report from Study
  Country: AU (occurrence: AU)
  Receive Date: 20130315
  Receipt Date: 20130509
  Transmission Date: 20140414
  Serious: Yes (Other)
  Sender: FDA-Public Use
  Company Number: AU-009507513-1303AUS006833

PATIENT
  Age: 35 Year
  Sex: Female

DRUGS (3)
  1. VICTRELIS 200 MG [Suspect]
     Dosage: DOSE UNSPEC
     Route: 048
  2. PEGATRON [Suspect]
     Dosage: DOSE UNSPEC
     Route: 050
  3. PEGASYS [Suspect]

REACTIONS (3)
  - Overdose [Unknown]
  - Maternal exposure during pregnancy [Unknown]
  - No adverse event [Unknown]
